FAERS Safety Report 16208159 (Version 1)
Quarter: 2019Q2

REPORT INFORMATION
  Report Type: Spontaneous
  Country: JP (occurrence: JP)
  Receive Date: 20190417
  Receipt Date: 20190417
  Transmission Date: 20190711
  Serious: Yes (Hospitalization)
  Sender: FDA-Public Use
  Company Number: JP-BAYER-2019-048138

PATIENT
  Age: 83 Year
  Sex: Male
  Weight: 70.1 kg

DRUGS (13)
  1. ROSUVASTATIN OD [Concomitant]
     Dosage: DAILY DOSE 1 DF
  2. EPINASTINE. [Concomitant]
     Active Substance: EPINASTINE HYDROCHLORIDE
     Dosage: DAILY DOSE 1 DF
  3. AMITIZA [Concomitant]
     Active Substance: LUBIPROSTONE
     Dosage: DAILY DOSE 2 DF
  4. MINOCYCLINE HYDROCHLORIDE. [Concomitant]
     Active Substance: MINOCYCLINE HYDROCHLORIDE
     Dosage: DAILY DOSE 1 DF
  5. STIVARGA [Suspect]
     Active Substance: REGORAFENIB
     Indication: COLORECTAL CANCER RECURRENT
     Dosage: 3 WEEKS ON 1 WEEK OFF
     Route: 048
     Dates: start: 20181116, end: 20190125
  6. LACTEC [Concomitant]
     Active Substance: CALCIUM CHLORIDE ANHYDROUS\POTASSIUM CHLORIDE\SODIUM CHLORIDE\SODIUM LACTATE
  7. OLMESARTAN OD [Concomitant]
     Dosage: DAILY DOSE 1 DF
  8. TELEMINSOFT [Concomitant]
     Active Substance: BISACODYL
     Dosage: DAILY DOSE 10 MG
  9. HEPARINOID [Concomitant]
     Active Substance: CHONDROITIN SULFATE (BOVINE)
  10. CARVEDILOL. [Concomitant]
     Active Substance: CARVEDILOL
     Dosage: DAILY DOSE .5 DF
  11. CILNIDIPINE [Concomitant]
     Active Substance: CILNIDIPINE
     Dosage: DAILY DOSE 1 DF
  12. MAGNESIUM OXIDE. [Concomitant]
     Active Substance: MAGNESIUM OXIDE
     Dosage: DAILY DOSE 3 DF
  13. SOLDEM 3A [Concomitant]
     Active Substance: CARBOHYDRATES\POTASSIUM CHLORIDE\SODIUM CHLORIDE\SODIUM LACTATE

REACTIONS (7)
  - Oedema peripheral [Recovering/Resolving]
  - Drug-induced liver injury [Recovering/Resolving]
  - Thyroid disorder [Recovering/Resolving]
  - Dyspnoea exertional [None]
  - Abnormal weight gain [Recovering/Resolving]
  - Pleural effusion [None]
  - Hepatic enzyme increased [Recovering/Resolving]

NARRATIVE: CASE EVENT DATE: 20181116
